FAERS Safety Report 16492293 (Version 2)
Quarter: 2019Q3

REPORT INFORMATION
  Report Type: Spontaneous
  Country: DE (occurrence: DE)
  Receive Date: 20190628
  Receipt Date: 20190926
  Transmission Date: 20191004
  Serious: Yes (Other)
  Sender: FDA-Public Use
  Company Number: PHHY2019DE145270

PATIENT
  Age: 24 Year
  Sex: Female
  Weight: 55.5 kg

DRUGS (3)
  1. FEMIBION [Concomitant]
     Indication: PROPHYLAXIS
     Dosage: 0.8 MG, QD
     Route: 048
     Dates: start: 20130614
  2. LEVETIRACETAM. [Suspect]
     Active Substance: LEVETIRACETAM
     Indication: JUVENILE MYOCLONIC EPILEPSY
     Dosage: 500 MG, QD (250 MG, 2X/DAY (BID)) (250-0-250)
     Route: 048
  3. RHOPHYLAC [Concomitant]
     Active Substance: HUMAN RHO(D) IMMUNE GLOBULIN
     Indication: PROPHYLAXIS
     Dosage: 300 UG, UNK (TOTAL) (ONE TIME DOSE)
     Route: 030
     Dates: start: 20131209, end: 20131209

REACTIONS (2)
  - Premature delivery [Unknown]
  - Maternal exposure during pregnancy [Unknown]

NARRATIVE: CASE EVENT DATE: 20130516
